FAERS Safety Report 11840204 (Version 1)
Quarter: 2015Q4

REPORT INFORMATION
  Report Type: Spontaneous
  Country: US (occurrence: None)
  Receive Date: 20151215
  Receipt Date: 20151215
  Transmission Date: 20160305
  Serious: No
  Sender: FDA-Public Use
  Company Number: None

PATIENT
  Age: 62 Year
  Sex: Female
  Weight: 68.95 kg

DRUGS (3)
  1. MULTI VITAMIN [Concomitant]
     Active Substance: VITAMINS
  2. ASPIRIN. [Concomitant]
     Active Substance: ASPIRIN
  3. BRISDELLE [Suspect]
     Active Substance: PAROXETINE MESYLATE
     Indication: MENOPAUSAL SYMPTOMS
     Dosage: 1 PILL DAILY AT BEDTIME ONCE DAILY TAKEN BY MOUTH
     Route: 048
     Dates: start: 20151121, end: 20151214

REACTIONS (7)
  - Ulcer [None]
  - Lip exfoliation [None]
  - Chapped lips [None]
  - Swollen tongue [None]
  - Hyperhidrosis [None]
  - Chills [None]
  - Drug ineffective [None]

NARRATIVE: CASE EVENT DATE: 20151214
